FAERS Safety Report 14665644 (Version 2)
Quarter: 2018Q4

REPORT INFORMATION
  Report Type: Report from Study
  Country: JP (occurrence: JP)
  Receive Date: 20180321
  Receipt Date: 20181030
  Transmission Date: 20190204
  Serious: Yes (Death, Hospitalization, Disabling, Other)
  Sender: FDA-Public Use
  Company Number: JP-009507513-1803JPN002118J

PATIENT
  Age: 73 Year
  Sex: Male
  Weight: 47 kg

DRUGS (2)
  1. LOXOPROFEN [Concomitant]
     Active Substance: LOXOPROFEN
     Indication: TRANSITIONAL CELL CARCINOMA
     Dosage: 60 MILLIGRAM, QD
     Route: 048
     Dates: start: 20180301
  2. KEYTRUDA [Suspect]
     Active Substance: PEMBROLIZUMAB
     Indication: TRANSITIONAL CELL CARCINOMA
     Dosage: 200 MILLIGRAM
     Route: 041
     Dates: start: 20180221, end: 20180221

REACTIONS (4)
  - Dyspnoea [Fatal]
  - Pain [Unknown]
  - Hepatic failure [Fatal]
  - Nausea [Unknown]

NARRATIVE: CASE EVENT DATE: 20180301
